FAERS Safety Report 11773912 (Version 1)
Quarter: 2015Q4

REPORT INFORMATION
  Report Type: Spontaneous
  Country: CH (occurrence: CH)
  Receive Date: 20151124
  Receipt Date: 20151124
  Transmission Date: 20160304
  Serious: Yes (Hospitalization)
  Sender: FDA-Public Use
  Company Number: CH-MEDA-2015110083

PATIENT
  Age: 92 Year
  Sex: Male

DRUGS (10)
  1. COLCHICIN [Suspect]
     Active Substance: COLCHICINE
     Indication: GOUT
     Route: 048
     Dates: start: 20150809, end: 20150827
  2. COSAAR [Suspect]
     Active Substance: LOSARTAN POTASSIUM
     Indication: HYPERTENSION
     Route: 048
     Dates: end: 20150827
  3. METOLAZON [Suspect]
     Active Substance: METOLAZONE
     Indication: CARDIAC VALVE DISEASE
     Route: 048
     Dates: start: 20150807, end: 20150829
  4. ELIQUIS [Suspect]
     Active Substance: APIXABAN
     Indication: ATRIAL FIBRILLATION
     Route: 048
     Dates: start: 20150203
  5. PREDNISON [Concomitant]
     Active Substance: PREDNISONE
     Dates: start: 20150811, end: 20150817
  6. NITRODERM [Concomitant]
     Active Substance: NITROGLYCERIN
     Dates: end: 20150829
  7. ZYLORIC [Concomitant]
     Active Substance: ALLOPURINOL
     Dates: end: 20150829
  8. TOREM [Suspect]
     Active Substance: TORSEMIDE
     Indication: CARDIAC VALVE DISEASE
     Route: 048
     Dates: end: 20150829
  9. ALDACTONE [Suspect]
     Active Substance: SPIRONOLACTONE
     Indication: CARDIAC VALVE DISEASE
     Route: 048
     Dates: end: 20150829
  10. BELOC [Concomitant]
     Active Substance: METOPROLOL TARTRATE

REACTIONS (7)
  - Haematuria [Unknown]
  - Blood pressure decreased [Recovered/Resolved]
  - Diarrhoea [Recovered/Resolved]
  - Blood electrolytes abnormal [Recovered/Resolved]
  - Anaemia [Unknown]
  - Glomerular filtration rate decreased [Recovered/Resolved]
  - Vomiting [Recovered/Resolved]

NARRATIVE: CASE EVENT DATE: 201508
